FAERS Safety Report 12593946 (Version 1)
Quarter: 2016Q3

REPORT INFORMATION
  Report Type: Spontaneous
  Country: US (occurrence: US)
  Receive Date: 20160726
  Receipt Date: 20160726
  Transmission Date: 20161109
  Serious: No
  Sender: FDA-Public Use
  Company Number: US-UNITED THERAPEUTICS-UNT-2016-007181

PATIENT
  Age: 76 Year
  Sex: Female
  Weight: 57.14 kg

DRUGS (4)
  1. REMODULIN [Suspect]
     Active Substance: TREPROSTINIL
     Indication: PULMONARY ARTERIAL HYPERTENSION
     Dosage: 0.0548,?G/KG,CONTINUING
     Route: 041
     Dates: start: 20100707
  2. LETAIRIS [Concomitant]
     Active Substance: AMBRISENTAN
     Indication: PRODUCT USED FOR UNKNOWN INDICATION
  3. ADCIRCA [Concomitant]
     Active Substance: TADALAFIL
     Indication: PRODUCT USED FOR UNKNOWN INDICATION
  4. COUMADIN [Concomitant]
     Active Substance: WARFARIN SODIUM
     Indication: PRODUCT USED FOR UNKNOWN INDICATION

REACTIONS (7)
  - Accidental overdose [Unknown]
  - Cough [Unknown]
  - Device use error [Unknown]
  - Flushing [Unknown]
  - Nausea [Unknown]
  - Dyspepsia [Unknown]
  - Tinnitus [Unknown]

NARRATIVE: CASE EVENT DATE: 201604
